FAERS Safety Report 17595999 (Version 6)
Quarter: 2020Q3

REPORT INFORMATION
  Report Type: Report from Study
  Country: None (occurrence: US)
  Receive Date: 20200329
  Receipt Date: 20200717
  Transmission Date: 20201102
  Serious: Yes (Other)
  Sender: FDA-Public Use
  Company Number: US-ABBVIE-20K-163-3340478-00

PATIENT
  Age: 34 Year
  Sex: Female

DRUGS (5)
  1. NORVIR [Suspect]
     Active Substance: RITONAVIR
     Route: 048
     Dates: start: 20190724
  2. PREZISTA [Suspect]
     Active Substance: DARUNAVIR ETHANOLATE
     Route: 048
     Dates: start: 20190724
  3. TRUVADA [Suspect]
     Active Substance: EMTRICITABINE\TENOFOVIR DISOPROXIL FUMARATE
     Indication: HIV INFECTION
     Dosage: WEEK 0
     Route: 048
  4. PREZISTA [Suspect]
     Active Substance: DARUNAVIR ETHANOLATE
     Indication: HIV INFECTION
     Dosage: WEEK 0
     Route: 048
     Dates: end: 20190724
  5. NORVIR [Suspect]
     Active Substance: RITONAVIR
     Indication: HIV INFECTION
     Dosage: WEEK 0
     Route: 048
     Dates: end: 20190724

REACTIONS (2)
  - Abortion induced [Unknown]
  - Maternal exposure during pregnancy [Unknown]

NARRATIVE: CASE EVENT DATE: 20191002
